FAERS Safety Report 7197949-6 (Version None)
Quarter: 2010Q4

REPORT INFORMATION
  Report Type: 
  Country: None (occurrence: None)
  Receive Date: 20101227
  Receipt Date: 20101222
  Transmission Date: 20110411
  Serious: Yes (Life-Threatening, Other)
  Sender: FDA-Public Use
  Company Number: US-BAXTER-2010BH028387

PATIENT
  Age: 30 Year
  Sex: Male
  Weight: 104 kg

DRUGS (6)
  1. GAMMAGARD LIQUID [Suspect]
     Indication: IMMUNODEFICIENCY COMMON VARIABLE
     Route: 042
  2. GAMMAGARD LIQUID [Suspect]
     Indication: PRIMARY IMMUNODEFICIENCY SYNDROME
     Route: 042
  3. GAMMAGARD LIQUID [Suspect]
     Route: 042
     Dates: start: 20101117, end: 20101117
  4. GAMMAGARD LIQUID [Suspect]
     Route: 042
     Dates: start: 20101117, end: 20101117
  5. GAMMAGARD LIQUID [Suspect]
     Route: 042
     Dates: start: 20101117, end: 20101117
  6. GAMMAGARD LIQUID [Suspect]
     Route: 042
     Dates: start: 20101117, end: 20101117

REACTIONS (6)
  - CHEST PAIN [None]
  - ERYTHEMA [None]
  - HYPERSENSITIVITY [None]
  - PHARYNGEAL OEDEMA [None]
  - SWELLING FACE [None]
  - URTICARIA [None]
